FAERS Safety Report 8290100-0 (Version None)
Quarter: 2012Q1

REPORT INFORMATION
  Report Type: 
  Country: None (occurrence: None)
  Receive Date: 20120316
  Receipt Date: 20090327
  Transmission Date: 20120608
  Serious: Yes (Other)
  Sender: FDA-Public Use
  Company Number: PHEH2008US06833

PATIENT
  Age: 68 Year
  Sex: Female
  Weight: 132.9 kg

DRUGS (7)
  1. METFORMIN HCL [Concomitant]
  2. LASIX [Concomitant]
  3. TEKTURNA [Suspect]
     Indication: HYPERTENSION
     Dosage: 150 MG/DAY, ORAL
     Route: 048
     Dates: start: 20071024, end: 20080729
  4. ZOLOFT [Concomitant]
  5. DIOVAN HCT [Concomitant]
  6. NORVASC [Concomitant]
  7. POTASSIUM CHLORIDE [Concomitant]

REACTIONS (3)
  - DYSPHAGIA [None]
  - ANGIOEDEMA [None]
  - SWOLLEN TONGUE [None]
